FAERS Safety Report 18026212 (Version 10)
Quarter: 2025Q3

REPORT INFORMATION
  Report Type: Report from Study
  Country: US (occurrence: US)
  Receive Date: 20200715
  Receipt Date: 20250903
  Transmission Date: 20251021
  Serious: Yes (Hospitalization, Other)
  Sender: DAIICHI
  Company Number: US-DSJP-DSU-2019-143681

PATIENT

DRUGS (24)
  1. PEXIDARTINIB [Suspect]
     Active Substance: PEXIDARTINIB
     Indication: Giant cell tumour of tendon sheath
     Dosage: 200 MG, BID
     Route: 048
     Dates: start: 20191028
  2. PEXIDARTINIB [Suspect]
     Active Substance: PEXIDARTINIB
     Indication: Connective tissue neoplasm
     Dosage: 400 MG, BID
     Route: 048
     Dates: start: 20191028
  3. PEXIDARTINIB [Suspect]
     Active Substance: PEXIDARTINIB
     Indication: Soft tissue neoplasm
     Dosage: 400 MG, BID
     Route: 048
     Dates: start: 201910, end: 202002
  4. PEXIDARTINIB [Suspect]
     Active Substance: PEXIDARTINIB
     Indication: Tongue cancer metastatic
     Dosage: 200 MG, BID
     Route: 048
     Dates: start: 20191204, end: 20200827
  5. PEXIDARTINIB [Suspect]
     Active Substance: PEXIDARTINIB
     Indication: Giant cell tumour of tendon sheath
     Route: 048
     Dates: start: 20200916
  6. PEXIDARTINIB [Suspect]
     Active Substance: PEXIDARTINIB
     Route: 048
     Dates: start: 20191028
  7. PEXIDARTINIB [Suspect]
     Active Substance: PEXIDARTINIB
     Route: 048
     Dates: start: 201910
  8. PEXIDARTINIB [Suspect]
     Active Substance: PEXIDARTINIB
     Dosage: 125 MG, BID
     Route: 048
     Dates: start: 20191028
  9. PEXIDARTINIB [Suspect]
     Active Substance: PEXIDARTINIB
     Dosage: 125 MG, BID (1 CAPSULE BY MOUTH TWICE DAILY (AM+PM)
     Route: 048
     Dates: start: 20191028
  10. JARDIANCE [Suspect]
     Active Substance: EMPAGLIFLOZIN
     Indication: Blood glucose fluctuation
     Route: 065
  11. ASPIRIN [Concomitant]
     Active Substance: ASPIRIN
     Indication: Product used for unknown indication
     Route: 065
  12. LIPITOR [Concomitant]
     Active Substance: ATORVASTATIN CALCIUM
     Indication: Product used for unknown indication
     Route: 065
  13. ALUMINUM HYDROXIDE\MAGNESIUM CARBONATE [Concomitant]
     Active Substance: ALUMINUM HYDROXIDE\MAGNESIUM CARBONATE
     Indication: Product used for unknown indication
     Route: 065
  14. OXYCODONE [Concomitant]
     Active Substance: OXYCODONE
     Indication: Pain
     Dosage: 15 MG, TID
     Route: 048
  15. LEVOTHYROXINE [Concomitant]
     Active Substance: LEVOTHYROXINE
     Indication: Hypothyroidism
     Dosage: 150 UG, QD
     Route: 065
  16. LISINOPRIL [Concomitant]
     Active Substance: LISINOPRIL
     Indication: Hypertension
     Dosage: 10 MG, QD
     Route: 065
  17. EFFEXOR [Concomitant]
     Active Substance: VENLAFAXINE HYDROCHLORIDE
     Indication: Depression
     Dosage: 150 MG, QD
     Route: 065
  18. METFORMIN [Concomitant]
     Active Substance: METFORMIN HYDROCHLORIDE
     Indication: Diabetes mellitus
     Dosage: 1000 MG, BID
     Route: 065
  19. CLONAZEPAM [Concomitant]
     Active Substance: CLONAZEPAM
     Indication: Product used for unknown indication
     Dosage: 0.5 MG, TID
     Route: 048
  20. ATORVASTATIN [Concomitant]
     Active Substance: ATORVASTATIN
     Indication: Product used for unknown indication
     Route: 048
  21. ZANAFLEX [Concomitant]
     Active Substance: TIZANIDINE HYDROCHLORIDE
     Indication: Product used for unknown indication
     Dosage: 2 MG, BID
     Route: 048
  22. FAMOTIDINE [Concomitant]
     Active Substance: FAMOTIDINE
     Indication: Product used for unknown indication
     Dosage: 20 MG, QD
     Route: 048
  23. GLIPIZIDE [Concomitant]
     Active Substance: GLIPIZIDE
     Indication: Product used for unknown indication
     Dosage: 2.5 MG, QD
     Route: 048
  24. ZOFRAN [Concomitant]
     Active Substance: ONDANSETRON HYDROCHLORIDE
     Indication: Product used for unknown indication
     Dosage: 5 MG, BID
     Route: 048

REACTIONS (126)
  - Depression [Recovered/Resolved]
  - Depression [Recovered/Resolved]
  - Brain fog [Not Recovered/Not Resolved]
  - Renal impairment [Unknown]
  - Hypernatraemia [Recovered/Resolved]
  - Cholelithiasis [Recovered/Resolved]
  - COVID-19 [Recovered/Resolved]
  - Throat irritation [Recovered/Resolved]
  - Illness [Recovered/Resolved]
  - Radiation fibrosis [Recovered/Resolved]
  - Gallbladder operation [Recovered/Resolved]
  - Disease progression [Recovered/Resolved]
  - Malaise [Recovered/Resolved]
  - Bone pain [Recovered/Resolved]
  - Lacrimation increased [Not Recovered/Not Resolved]
  - Cough [Unknown]
  - Blood calcium increased [Not Recovered/Not Resolved]
  - Blood glucose decreased [Not Recovered/Not Resolved]
  - Swelling [Unknown]
  - Blood urea decreased [Unknown]
  - Blood creatinine decreased [Unknown]
  - Eructation [Unknown]
  - Dyspepsia [Recovered/Resolved]
  - Hiccups [Unknown]
  - Diarrhoea [Recovering/Resolving]
  - Chest pain [Unknown]
  - Blood chloride decreased [Unknown]
  - Blood sodium decreased [Recovered/Resolved]
  - Blood electrolytes decreased [Not Recovered/Not Resolved]
  - Dehydration [Recovered/Resolved]
  - Tumour compression [Recovered/Resolved]
  - Urine flow decreased [Recovered/Resolved]
  - Depression [Recovered/Resolved]
  - Dyspnoea [Not Recovered/Not Resolved]
  - Brain fog [Recovered/Resolved]
  - Arthralgia [Not Recovered/Not Resolved]
  - Pain in extremity [Recovered/Resolved]
  - Tinnitus [Unknown]
  - Flushing [Unknown]
  - Influenza like illness [Unknown]
  - Musculoskeletal discomfort [Not Recovered/Not Resolved]
  - Musculoskeletal stiffness [Unknown]
  - Peripheral coldness [Unknown]
  - Anxiety [Unknown]
  - Axillary pain [Unknown]
  - Gastrooesophageal reflux disease [Unknown]
  - Chest pain [Unknown]
  - Neck pain [Unknown]
  - Chills [Unknown]
  - Back pain [Unknown]
  - Pain [Unknown]
  - Ear pain [Recovering/Resolving]
  - Otitis media [Unknown]
  - Lethargy [Unknown]
  - Stress [Unknown]
  - Sleep disorder [Unknown]
  - Muscle atrophy [Unknown]
  - Gait inability [Unknown]
  - Cholelithiasis [Not Recovered/Not Resolved]
  - Illness [Recovered/Resolved]
  - Musculoskeletal discomfort [Unknown]
  - Dental discomfort [Unknown]
  - Flatulence [Unknown]
  - Insomnia [Unknown]
  - Brain fog [Not Recovered/Not Resolved]
  - Depression [Recovered/Resolved]
  - Illness [Recovered/Resolved]
  - Illness [Not Recovered/Not Resolved]
  - Balance disorder [Not Recovered/Not Resolved]
  - Depression [Not Recovered/Not Resolved]
  - Anxiety [Not Recovered/Not Resolved]
  - Pain [Not Recovered/Not Resolved]
  - Hyponatraemia [Not Recovered/Not Resolved]
  - Dizziness [Not Recovered/Not Resolved]
  - Headache [Recovered/Resolved]
  - Memory impairment [Not Recovered/Not Resolved]
  - Abdominal discomfort [Not Recovered/Not Resolved]
  - Headache [Not Recovered/Not Resolved]
  - Hepatic enzyme increased [Recovered/Resolved]
  - Fatigue [Not Recovered/Not Resolved]
  - Dysgeusia [Not Recovered/Not Resolved]
  - Hair colour changes [Recovered/Resolved]
  - Blood lactate dehydrogenase increased [Unknown]
  - Decreased appetite [Recovering/Resolving]
  - Abdominal pain upper [Recovered/Resolved]
  - Hypertension [Recovered/Resolved]
  - Nausea [Not Recovered/Not Resolved]
  - Aspartate aminotransferase increased [Not Recovered/Not Resolved]
  - Alanine aminotransferase increased [Not Recovered/Not Resolved]
  - Hepatic function abnormal [Not Recovered/Not Resolved]
  - Liver function test increased [Unknown]
  - Vision blurred [Unknown]
  - Paraesthesia [Unknown]
  - Hypoaesthesia [Unknown]
  - Rash [Unknown]
  - Neuropathy peripheral [Unknown]
  - Nausea [Not Recovered/Not Resolved]
  - Vomiting [Not Recovered/Not Resolved]
  - Coronary artery disease [Not Recovered/Not Resolved]
  - Radiation fibrosis - lung [Not Recovered/Not Resolved]
  - Claustrophobia [Not Recovered/Not Resolved]
  - Headache [Not Recovered/Not Resolved]
  - Gingival swelling [Not Recovered/Not Resolved]
  - Biliary colic [Recovered/Resolved]
  - Disability [Unknown]
  - Neuralgia [Recovered/Resolved]
  - Mean platelet volume decreased [Recovered/Resolved]
  - Hiatus hernia [Not Recovered/Not Resolved]
  - Mean cell volume decreased [Recovered/Resolved]
  - Blood glucose increased [Not Recovered/Not Resolved]
  - Vein collapse [Unknown]
  - Tumour pain [Recovered/Resolved]
  - Precancerous condition [Unknown]
  - Gallbladder disorder [Recovering/Resolving]
  - Vomiting [Not Recovered/Not Resolved]
  - Fall [Not Recovered/Not Resolved]
  - Nausea [Not Recovered/Not Resolved]
  - Scar [Not Recovered/Not Resolved]
  - Fatigue [Not Recovered/Not Resolved]
  - Pain [Not Recovered/Not Resolved]
  - Product dose omission issue [Recovered/Resolved]
  - Intentional dose omission [Recovered/Resolved]
  - Off label use [Not Recovered/Not Resolved]
  - Product dose omission issue [Not Recovered/Not Resolved]
  - Product dose omission issue [Not Recovered/Not Resolved]
  - Product dose omission issue [Not Recovered/Not Resolved]

NARRATIVE: CASE EVENT DATE: 20190101
